FAERS Safety Report 20621695 (Version 2)
Quarter: 2022Q1

REPORT INFORMATION
  Report Type: Spontaneous
  Country: US (occurrence: US)
  Receive Date: 20220322
  Receipt Date: 20220323
  Transmission Date: 20220423
  Serious: Yes (Other)
  Sender: FDA-Public Use
  Company Number: US-APOTEX-2022AP004895

PATIENT
  Age: 59 Year
  Sex: Male

DRUGS (4)
  1. MOXIFLOXACIN [Suspect]
     Active Substance: MOXIFLOXACIN
     Indication: Antibiotic prophylaxis
     Dosage: UNK, THERAPY DURATION: 2.5 YEARS
     Route: 047
  2. GATIFLOXACIN [Suspect]
     Active Substance: GATIFLOXACIN
     Indication: Antibiotic prophylaxis
     Dosage: UNK, THERAPY DURATION: 2.5 YEARS
     Route: 065
  3. DEXAMETHASONE [Suspect]
     Active Substance: DEXAMETHASONE
     Indication: Steroid therapy
     Dosage: UNK
     Route: 047
  4. DEXAMETHASONE [Suspect]
     Active Substance: DEXAMETHASONE
     Indication: Prophylaxis

REACTIONS (1)
  - Keratitis bacterial [Recovered/Resolved]
